FAERS Safety Report 10714616 (Version 1)
Quarter: 2015Q1

REPORT INFORMATION
  Report Type: Report from Study
  Country: US (occurrence: US)
  Receive Date: 20150115
  Receipt Date: 20150115
  Transmission Date: 20150721
  Serious: Yes (Life-Threatening, Hospitalization)
  Sender: FDA-Public Use
  Company Number: US-009507513-1501USA004397

PATIENT
  Age: 30 Year
  Sex: Female
  Weight: 104 kg

DRUGS (9)
  1. IDARUBICIN [Suspect]
     Active Substance: IDARUBICIN
     Dosage: 8 MG/M2/DAY, IV OVER 15 MIN ON DAYS 4-5, CYCLE = 28 DAYS
     Route: 042
     Dates: start: 20140810
  2. CYTARABINE. [Suspect]
     Active Substance: CYTARABINE
     Dosage: 750 MG/M2/DAY, CONTINUOUS INFUSION IV ON DAYS 4-7, CYCLE = 28 DAYS
     Route: 042
     Dates: start: 20141229
  3. VORINOSTAT [Suspect]
     Active Substance: VORINOSTAT
     Dosage: 500 MG, 3X/DAY, ON DAYS 1-3, CYCLE = 28 DAYS
     Route: 048
     Dates: start: 20141226
  4. VORINOSTAT [Suspect]
     Active Substance: VORINOSTAT
     Dosage: 500 MG, 3X/DAY, ON DAYS 1-3, CYCLE = 28 DAYS
     Route: 048
     Dates: start: 20140807
  5. IDARUBICIN [Suspect]
     Active Substance: IDARUBICIN
     Dosage: 8 MG/M2/DAY, IV OVER 15 MIN ON DAYS 4-5, CYCLE = 28 DAYS
     Route: 042
     Dates: start: 20141229
  6. VORINOSTAT [Suspect]
     Active Substance: VORINOSTAT
     Indication: ACUTE MYELOID LEUKAEMIA
     Dosage: 500 MG, 3X/DAY, ON DAYS 1-3, CYCLE = 28 DAYS
     Route: 048
     Dates: start: 20140624
  7. CYTARABINE. [Suspect]
     Active Substance: CYTARABINE
     Dosage: 750 MG/M2/DAY, CONTINUOUS INFUSION IV ON DAYS 4-7, CYCLE = 28 DAYS
     Route: 042
     Dates: start: 20140810
  8. CYTARABINE. [Suspect]
     Active Substance: CYTARABINE
     Indication: ACUTE MYELOID LEUKAEMIA
     Dosage: 1500 MG/M2/DAY, CONTINUOUS INFUSION IV ON DAYS 4-7, CYCLE = 28 DAYS
     Route: 042
     Dates: start: 20140627
  9. IDARUBICIN [Suspect]
     Active Substance: IDARUBICIN
     Indication: ACUTE MYELOID LEUKAEMIA
     Dosage: 12 MG/M2/DAY, IV OVER 15 MIN ON DAYS 4-6, CYCLE = 28 DAYS
     Route: 042
     Dates: start: 20140627

REACTIONS (2)
  - Febrile neutropenia [Recovering/Resolving]
  - Sepsis [Recovering/Resolving]

NARRATIVE: CASE EVENT DATE: 20150110
